FAERS Safety Report 5258795-3 (Version None)
Quarter: 2007Q1

REPORT INFORMATION
  Report Type: 
  Country: None (occurrence: None)
  Receive Date: 20070306
  Receipt Date: 20070306
  Transmission Date: 20070707
  Serious: Yes (Disabling)
  Sender: FDA-Public Use
  Company Number: None

PATIENT
  Age: 62 Year
  Sex: Female
  Weight: 65.7716 kg

DRUGS (2)
  1. FOSAMAX [Suspect]
     Indication: OSTEOPOROSIS
     Dosage: 1 TABLET PER WEEK PO
     Route: 048
     Dates: start: 20031201, end: 20050901
  2. BONIVA [Suspect]
     Indication: OSTEOPOROSIS
     Dosage: 1 TABLET PER MONTH PO
     Route: 048
     Dates: start: 20050901, end: 20070201

REACTIONS (5)
  - OSTEONECROSIS [None]
  - PAIN [None]
  - PAIN IN JAW [None]
  - PROCEDURAL PAIN [None]
  - TOOTHACHE [None]
